FAERS Safety Report 4379462-4 (Version None)
Quarter: 2004Q2

REPORT INFORMATION
  Report Type: 
  Country: None (occurrence: None)
  Receive Date: 20040615
  Receipt Date: 20040601
  Transmission Date: 20050107
  Serious: No
  Sender: FDA-Public Use
  Company Number: 2004SE03095

PATIENT
  Age: 63 Year
  Sex: Male
  Weight: 72 kg

DRUGS (5)
  1. ROSUVASTATIN [Suspect]
     Indication: HYPERCHOLESTEROLAEMIA
     Dosage: 20 MG DAILY PO
     Route: 048
     Dates: start: 20031120, end: 20040518
  2. FOSAMAX [Concomitant]
  3. GLICLAZIDE [Concomitant]
  4. METFORMIN HCL [Concomitant]
  5. ASAFLOW [Concomitant]

REACTIONS (4)
  - GASTRIC DISORDER [None]
  - HEPATIC FUNCTION ABNORMAL [None]
  - LYMPHOMA [None]
  - WEIGHT DECREASED [None]
